FAERS Safety Report 6134433-2 (Version None)
Quarter: 2009Q1

REPORT INFORMATION
  Report Type: 
  Country: None (occurrence: None)
  Receive Date: 20090327
  Receipt Date: 20090313
  Transmission Date: 20090719
  Serious: Yes (Hospitalization, Other)
  Sender: FDA-Public Use
  Company Number: PHBS2007BR08090

PATIENT
  Age: 66 Year
  Sex: Female

DRUGS (10)
  1. VOLTAREN [Suspect]
     Indication: PAIN
     Dosage: 50 MG, Q8H
     Dates: start: 19900101
  2. RENITEC [Concomitant]
     Indication: HYPERTENSION
     Dosage: 10 MG/DAY
  3. PURAN T4 [Concomitant]
     Indication: HYPERTHYROIDISM
     Dosage: 75 MG/DAY
  4. VALIUM [Concomitant]
     Indication: PAIN
     Dosage: 10 MG/DAY
  5. VALIUM [Concomitant]
     Dosage: 5 MG/DAY
  6. SIMVASTATIN [Concomitant]
     Indication: BLOOD CHOLESTEROL
     Dosage: 10 MG/DAY
  7. HYDROCHLOROTHIAZIDE [Concomitant]
  8. NOVALGINA [Concomitant]
     Indication: PAIN
     Dosage: 40 DRP, Q4H
  9. ORBINOL [Concomitant]
  10. TRAMADOL HCL [Concomitant]

REACTIONS (19)
  - ANORECTAL DISORDER [None]
  - BURN DEBRIDEMENT [None]
  - CHILLS [None]
  - COUGH [None]
  - DYSPNOEA [None]
  - IMPAIRED HEALING [None]
  - INFLAMMATION [None]
  - MALIGNANT TUMOUR EXCISION [None]
  - NEOPLASM MALIGNANT [None]
  - OEDEMA PERIPHERAL [None]
  - PLASTIC SURGERY [None]
  - POST PROCEDURAL COMPLICATION [None]
  - PYREXIA [None]
  - SCOLIOSIS [None]
  - SEPSIS [None]
  - SHOCK [None]
  - SPINAL DISORDER [None]
  - THERMAL BURN [None]
  - TREMOR [None]
